FAERS Safety Report 9657406 (Version 3)
Quarter: 2013Q4

REPORT INFORMATION
  Report Type: Spontaneous
  Country: FR (occurrence: FR)
  Receive Date: 20131030
  Receipt Date: 20131105
  Transmission Date: 20140711
  Serious: Yes (Hospitalization)
  Sender: FDA-Public Use
  Company Number: FR-PFIZER INC-2013281710

PATIENT
  Age: 64 Year
  Sex: Female

DRUGS (14)
  1. ZYVOXID [Suspect]
     Indication: DEVICE RELATED INFECTION
     Dosage: 600 MG, 2X/DAY
     Route: 048
     Dates: start: 20130812, end: 20130814
  2. VANCOMYCIN [Suspect]
     Indication: DEVICE RELATED INFECTION
     Dosage: 1250 MG, 2X/DAY
     Route: 042
     Dates: start: 20130801, end: 20130812
  3. VANCOMYCIN [Suspect]
     Dosage: 1250 MG, 2X/DAY
     Route: 042
     Dates: start: 20130814, end: 20130826
  4. TAZOCILLINE [Suspect]
     Indication: DEVICE RELATED INFECTION
     Dosage: 12 G, DAILY
     Route: 042
     Dates: start: 20130801, end: 20130904
  5. CUBICIN [Suspect]
     Indication: DEVICE RELATED INFECTION
     Dosage: 5 MG/KG, DAILY
     Route: 042
     Dates: start: 20130826, end: 20130904
  6. INEXIUM [Suspect]
     Dosage: 40 MG, DAILY
     Route: 048
     Dates: start: 20130801
  7. MORPHINE [Suspect]
     Dosage: 7.5 MG, 6X/DAY
     Route: 058
     Dates: start: 20130801, end: 20130805
  8. ACUPAN [Suspect]
     Dosage: 20 MG, 4X/DAY
     Route: 042
     Dates: start: 20130801
  9. CONTRAMAL LP [Suspect]
     Dosage: 100 MG, 2X/DAY
     Route: 048
     Dates: start: 20130801
  10. SIFROL [Concomitant]
     Indication: RESTLESS LEGS SYNDROME
  11. PERFALGAN [Concomitant]
     Dosage: 1 G, 4X/DAY
     Dates: start: 20130801, end: 20130804
  12. NICOPATCH [Concomitant]
     Dosage: 1 DF, DAILY
     Route: 062
     Dates: start: 20130801
  13. PARACETAMOL [Concomitant]
     Dosage: 3 G, DAILY AS NEEDED
     Route: 042
     Dates: start: 20130801
  14. LOVENOX [Concomitant]
     Dosage: 4000 IU, DAILY
     Route: 058
     Dates: start: 20130801

REACTIONS (4)
  - Rash [Recovered/Resolved]
  - Eosinophilia [Recovering/Resolving]
  - Liver injury [Recovering/Resolving]
  - Pyrexia [Unknown]
